FAERS Safety Report 6152142-0 (Version None)
Quarter: 2009Q2

REPORT INFORMATION
  Report Type: 
  Country: None (occurrence: None)
  Receive Date: 20090409
  Receipt Date: 20090409
  Transmission Date: 20091009
  Serious: No
  Sender: FDA-Public Use
  Company Number: None

PATIENT
  Age: 15 Month
  Sex: Female
  Weight: 9.9791 kg

DRUGS (2)
  1. INFANTS TYLENOL 160 MG TYLENOL, MCNEIL [Suspect]
     Dosage: 1.6 ML
  2. INFANTS TYLENOL [Suspect]

REACTIONS (1)
  - MEDICATION ERROR [None]
